FAERS Safety Report 5870668-1 (Version None)
Quarter: 2008Q3

REPORT INFORMATION
  Report Type: 
  Country: None (occurrence: None)
  Receive Date: 20080904
  Receipt Date: 20080904
  Transmission Date: 20090109
  Serious: Yes (Hospitalization)
  Sender: FDA-Public Use
  Company Number: PHEH1996US07617

PATIENT
  Sex: Male
  Weight: 76.8 kg

DRUGS (5)
  1. NEORAL [Suspect]
     Route: 048
     Dates: start: 19940904
  2. NEORAL [Suspect]
     Route: 065
  3. SANDIMMUNE [Suspect]
  4. IMURAN [Concomitant]
     Dosage: UNSPECIFIED
     Route: 065
  5. PREDNISONE [Concomitant]
     Dosage: UNSPECIFIED
     Route: 065

REACTIONS (1)
  - BLOOD CREATININE INCREASED [None]
